FAERS Safety Report 5749808-0 (Version None)
Quarter: 2008Q2

REPORT INFORMATION
  Report Type: 
  Country: None (occurrence: None)
  Receive Date: 20080522
  Receipt Date: 20080522
  Transmission Date: 20081010
  Serious: No
  Sender: FDA-Public Use
  Company Number: None

PATIENT
  Sex: Male
  Weight: 56.6996 kg

DRUGS (1)
  1. CRESTOR [Suspect]
     Indication: LOW DENSITY LIPOPROTEIN
     Dosage: 5MG DAILY PO
     Route: 048
     Dates: start: 20071001, end: 20080521

REACTIONS (2)
  - DIZZINESS [None]
  - HEADACHE [None]
